FAERS Safety Report 9732551 (Version 1)
Quarter: 2013Q4

REPORT INFORMATION
  Report Type: Spontaneous
  Country: US (occurrence: None)
  Receive Date: 20131204
  Receipt Date: 20131204
  Transmission Date: 20140711
  Serious: Yes (Other)
  Sender: FDA-Public Use
  Company Number: None

PATIENT
  Age: 46 Year
  Sex: Female
  Weight: 97.8 kg

DRUGS (1)
  1. LAMOTRIGENE [Suspect]
     Indication: DEPRESSION
     Dosage: 1 FOR 7 DAYS, 3 THEN 4
     Route: 048
     Dates: start: 20130603, end: 20130628

REACTIONS (3)
  - Lethargy [None]
  - Drooling [None]
  - Swollen tongue [None]
